FAERS Safety Report 16967868 (Version 2)
Quarter: 2020Q1

REPORT INFORMATION
  Report Type: Spontaneous
  Country: US (occurrence: US)
  Receive Date: 20191028
  Receipt Date: 20200116
  Transmission Date: 20200409
  Serious: No
  Sender: FDA-Public Use
  Company Number: US-BAUSCH-BL-2019-057917

PATIENT
  Age: 67 Year
  Sex: Female

DRUGS (1)
  1. LACRISERT [Suspect]
     Active Substance: HYDROXYPROPYL CELLULOSE
     Indication: DRY EYE
     Dosage: STARTED ABOUT 6 WEEKS AGO?INSERTING 1 LACRISERT OPHTHALMIC INSERT IN EACH EYE ONCE DAILY
     Route: 047
     Dates: start: 2019

REACTIONS (10)
  - Product quality issue [Unknown]
  - Visual impairment [Unknown]
  - Product physical consistency issue [Unknown]
  - Eye disorder [Unknown]
  - Eye irritation [Unknown]
  - Wrong technique in product usage process [Unknown]
  - Foreign body sensation in eyes [Unknown]
  - Product residue present [Unknown]
  - Therapeutic product effect incomplete [Unknown]
  - Eye pain [Unknown]

NARRATIVE: CASE EVENT DATE: 2019
